FAERS Safety Report 4855146-0 (Version None)
Quarter: 2005Q4

REPORT INFORMATION
  Report Type: 
  Country: None (occurrence: None)
  Receive Date: 20051214
  Receipt Date: 20051202
  Transmission Date: 20060501
  Serious: Yes (Other)
  Sender: FDA-Public Use
  Company Number: S05-USA-05109-01

PATIENT
  Age: 59 Year
  Sex: Female
  Weight: 127.0072 kg

DRUGS (7)
  1. LEXAPRO [Suspect]
     Indication: ANXIETY
     Dosage: 10 MG QD PO
     Route: 048
     Dates: start: 20020101, end: 20050101
  2. LEXAPRO [Suspect]
     Indication: DEPRESSION
     Dosage: 10 MG QD PO
     Route: 048
     Dates: start: 20020101, end: 20050101
  3. LEXAPRO [Suspect]
     Indication: ANXIETY
     Dosage: 20 MG QD PO
     Route: 048
     Dates: start: 20050101, end: 20050701
  4. LEXAPRO [Suspect]
     Indication: DEPRESSION
     Dosage: 20 MG QD PO
     Route: 048
     Dates: start: 20050101, end: 20050701
  5. LEXAPRO [Suspect]
     Indication: ANXIETY
     Dosage: 30 MG QD PO
     Route: 048
     Dates: start: 20050701
  6. LEXAPRO [Suspect]
     Indication: DEPRESSION
     Dosage: 30 MG QD PO
     Route: 048
     Dates: start: 20050701
  7. HYZAAR [Concomitant]

REACTIONS (2)
  - DIABETES MELLITUS [None]
  - WEIGHT INCREASED [None]
